FAERS Safety Report 25471218 (Version 2)
Quarter: 2025Q4

REPORT INFORMATION
  Report Type: Spontaneous
  Country: US (occurrence: US)
  Receive Date: 20250624
  Receipt Date: 20251009
  Transmission Date: 20260118
  Serious: No
  Sender: TOLMAR
  Company Number: US-TOLMAR, INC.-25US057893

PATIENT
  Age: 12 Year
  Sex: Male

DRUGS (2)
  1. FENSOLVI [Suspect]
     Active Substance: LEUPROLIDE ACETATE
     Indication: Gender dysphoria
     Dosage: 45 MILLIGRAM, Q 6 MONTH
     Route: 058
     Dates: start: 20250320
  2. DEVICE [Suspect]
     Active Substance: DEVICE
     Indication: Gender dysphoria

REACTIONS (4)
  - Intercepted product preparation error [Unknown]
  - Device leakage [Unknown]
  - Syringe issue [Unknown]
  - Off label use [Unknown]

NARRATIVE: CASE EVENT DATE: 20250320
